FAERS Safety Report 9492088 (Version 2)
Quarter: 2013Q3

REPORT INFORMATION
  Report Type: Spontaneous
  Country: US (occurrence: US)
  Receive Date: 20130830
  Receipt Date: 20130905
  Transmission Date: 20140515
  Serious: Yes (Hospitalization)
  Sender: FDA-Public Use
  Company Number: US-COVIDIEN/TYCO HEALTHCARE/MALLINCKRODT-T201304193

PATIENT
  Age: 30 Year
  Sex: Female

DRUGS (1)
  1. GABLOFEN [Suspect]
     Indication: MUSCLE SPASTICITY
     Dosage: 892.4 MCG PER DAY
     Route: 037

REACTIONS (6)
  - Mental status changes [Unknown]
  - Gastrointestinal disorder [Unknown]
  - Muscle spasticity [Unknown]
  - Restlessness [Unknown]
  - Pruritus [Unknown]
  - Insomnia [Unknown]
